FAERS Safety Report 20591017 (Version 1)
Quarter: 2022Q1

REPORT INFORMATION
  Report Type: Report from Study
  Country: BR (occurrence: BR)
  Receive Date: 20220314
  Receipt Date: 20220314
  Transmission Date: 20220423
  Serious: Yes (Other)
  Sender: FDA-Public Use
  Company Number: BR-NOVARTISPH-NVSC2022BR055067

PATIENT
  Age: 72 Year
  Sex: Female

DRUGS (2)
  1. COSENTYX [Suspect]
     Active Substance: SECUKINUMAB
     Indication: Psoriatic arthropathy
     Dosage: 300 MG, QMO
     Route: 065
     Dates: start: 20171221
  2. COSENTYX [Suspect]
     Active Substance: SECUKINUMAB
     Indication: Psoriasis
     Dosage: UNK (JAN/FEB 2022)
     Route: 065

REACTIONS (12)
  - Diabetes mellitus [Unknown]
  - Haemorrhage [Unknown]
  - Joint swelling [Recovering/Resolving]
  - Weight decreased [Unknown]
  - Bladder disorder [Unknown]
  - Cystocele [Unknown]
  - Anxiety [Unknown]
  - Pruritus [Unknown]
  - Peripheral venous disease [Unknown]
  - Hypersensitivity [Not Recovered/Not Resolved]
  - Erythema [Unknown]
  - Varicose vein [Unknown]

NARRATIVE: CASE EVENT DATE: 20210301
